FAERS Safety Report 5499628-X (Version None)
Quarter: 2007Q4

REPORT INFORMATION
  Report Type: 
  Country: None (occurrence: None)
  Receive Date: 20071026
  Receipt Date: 20071019
  Transmission Date: 20080405
  Serious: Yes (Other)
  Sender: FDA-Public Use
  Company Number: JP-PFIZER INC-2007089009

PATIENT
  Age: 79 Year
  Sex: Male

DRUGS (4)
  1. MIGLITOL TABLET [Suspect]
     Indication: DIABETES MELLITUS
     Dosage: DAILY DOSE:150MG
     Route: 048
     Dates: start: 20070920, end: 20071009
  2. DILTIAZEM HYDROCHLORIDE [Concomitant]
     Dosage: DAILY DOSE:30MG
     Route: 048
  3. FAMOTIDINE [Concomitant]
     Dosage: DAILY DOSE:20MG
     Route: 048
  4. URSO 250 [Concomitant]
     Dosage: DAILY DOSE:300MG
     Route: 048

REACTIONS (1)
  - HYPERKALAEMIA [None]
